FAERS Safety Report 19642375 (Version 1)
Quarter: 2021Q3

REPORT INFORMATION
  Report Type: Spontaneous
  Country: US (occurrence: US)
  Receive Date: 20210730
  Receipt Date: 20210730
  Transmission Date: 20211014
  Serious: No
  Sender: FDA-Public Use
  Company Number: US-SA-2021SA252036

PATIENT
  Age: 50 Year
  Sex: Female

DRUGS (1)
  1. CABLIVI [Suspect]
     Active Substance: CAPLACIZUMAB-YHDP
     Indication: IMMUNE THROMBOCYTOPENIA
     Dosage: 11 MG, QD
     Route: 058
     Dates: start: 20210708

REACTIONS (1)
  - Mood altered [Unknown]
